FAERS Safety Report 19820827 (Version 1)
Quarter: 2021Q3

REPORT INFORMATION
  Report Type: Spontaneous
  Country: US (occurrence: US)
  Receive Date: 20210913
  Receipt Date: 20210913
  Transmission Date: 20211014
  Serious: No
  Sender: FDA-Public Use
  Company Number: US-SA-2021SA296631

PATIENT
  Age: 56 Year
  Sex: Female
  Weight: 82.99 kg

DRUGS (2)
  1. DUPIXENT [Suspect]
     Active Substance: DUPILUMAB
     Indication: DERMATITIS
     Dosage: 600 MG, 1X
     Route: 058
  2. CEPHALEXINE [Concomitant]
     Active Substance: CEPHALEXIN

REACTIONS (2)
  - Localised infection [Unknown]
  - Product use in unapproved indication [Unknown]
